FAERS Safety Report 4268096-8 (Version None)
Quarter: 2004Q1

REPORT INFORMATION
  Report Type: 
  Country: None (occurrence: None)
  Receive Date: 20040109
  Receipt Date: 20040109
  Transmission Date: 20041129
  Serious: Yes (Other)
  Sender: FDA-Public Use
  Company Number: None

PATIENT
  Sex: Male
  Weight: 74.8435 kg

DRUGS (1)
  1. VIAGRA [Suspect]
     Dosage: ONCE WEEKLY ORAL
     Route: 048
     Dates: start: 20031009, end: 20040108

REACTIONS (1)
  - RETINOPATHY [None]
